FAERS Safety Report 22094008 (Version 1)
Quarter: 2023Q1

REPORT INFORMATION
  Report Type: Spontaneous
  Country: US (occurrence: None)
  Receive Date: 20230314
  Receipt Date: 20230314
  Transmission Date: 20230418
  Serious: Yes (Death, Life-Threatening, Hospitalization, Disabling)
  Sender: FDA-Public Use
  Company Number: None

PATIENT
  Age: 83 Year
  Sex: Male
  Weight: 66 kg

DRUGS (1)
  1. PEMBROLIZUMAB [Suspect]
     Active Substance: PEMBROLIZUMAB
     Indication: Lung squamous cell carcinoma metastatic
     Dosage: OTHER FREQUENCY : EVERY 6 WEEKS;?
     Route: 040
     Dates: start: 20221115, end: 20221228

REACTIONS (4)
  - Immune-mediated lung disease [None]
  - Therapeutic product effect decreased [None]
  - Respiratory failure [None]
  - Pulmonary fibrosis [None]

NARRATIVE: CASE EVENT DATE: 20230312
